FAERS Safety Report 7311942 (Version 2)
Quarter: 2013Q1

REPORT INFORMATION
  Report Type: Spontaneous
  Country: US (occurrence: US)
  Receive Date: 20100310
  Receipt Date: 20130325
  Transmission Date: 20140127
  Serious: No
  Sender: FDA-Public Use
  Company Number: US-BIOGENIDEC-2009BI036554

PATIENT
  Age: 32 Year
  Sex: Female

DRUGS (1)
  1. AVONEX [Suspect]
     Indication: MULTIPLE SCLEROSIS
     Route: 030
     Dates: start: 20050114, end: 20050601

REACTIONS (3)
  - Drug intolerance [Recovered/Resolved]
  - Central nervous system lesion [Recovered/Resolved]
  - Influenza like illness [Recovered/Resolved]
